FAERS Safety Report 9996596 (Version 1)
Quarter: 2014Q1

REPORT INFORMATION
  Report Type: Spontaneous
  Country: US (occurrence: None)
  Receive Date: 20140304
  Receipt Date: 20140304
  Transmission Date: 20141002
  Serious: Yes (Hospitalization)
  Sender: FDA-Public Use
  Company Number: RB-56480-2013

PATIENT
  Age: 40 Year
  Sex: Female

DRUGS (1)
  1. BUPRENORPHINE 8 MG (NONE) [Suspect]
     Indication: DRUG DEPENDENCE
     Dosage: (8 MG, 16 MG ONCE ORAL)?
     Route: 048
     Dates: start: 201307, end: 201307

REACTIONS (3)
  - Incorrect route of drug administration [None]
  - Dizziness [None]
  - Feeling abnormal [None]
